FAERS Safety Report 24175092 (Version 1)
Quarter: 2024Q3

REPORT INFORMATION
  Report Type: Spontaneous
  Country: SK (occurrence: SK)
  Receive Date: 20240805
  Receipt Date: 20240805
  Transmission Date: 20241017
  Serious: Yes (Hospitalization)
  Sender: BAUSCH AND LOMB
  Company Number: SK-EGIS-HUN-2024-0435

PATIENT
  Sex: Female

DRUGS (2)
  1. VENLAFAXINE [Suspect]
     Active Substance: VENLAFAXINE HYDROCHLORIDE
     Indication: Seasonal affective disorder
     Dosage: HIGHER DOSE (OVER 150 MG/DAY)
     Route: 065
  2. MILNACIPRAN [Concomitant]
     Active Substance: MILNACIPRAN
     Indication: Sleep disorder
     Route: 065

REACTIONS (1)
  - Drug intolerance [Unknown]
